FAERS Safety Report 19814700 (Version 1)
Quarter: 2021Q3

REPORT INFORMATION
  Report Type: Spontaneous
  Country: DE (occurrence: DE)
  Receive Date: 20210910
  Receipt Date: 20210910
  Transmission Date: 20211014
  Serious: Yes (Life-Threatening)
  Sender: FDA-Public Use
  Company Number: DE-JNJFOC-20210901100

PATIENT
  Age: 46 Year
  Sex: Female

DRUGS (1)
  1. SPRAVATO [Suspect]
     Active Substance: ESKETAMINE
     Indication: DEPRESSION
     Dates: start: 20210808, end: 20210822

REACTIONS (4)
  - Anger [Unknown]
  - Aggression [Unknown]
  - Suicide attempt [Unknown]
  - Fear [Unknown]

NARRATIVE: CASE EVENT DATE: 202108
